FAERS Safety Report 15658523 (Version 1)
Quarter: 2018Q4

REPORT INFORMATION
  Report Type: Spontaneous
  Country: JP (occurrence: JP)
  Receive Date: 20181126
  Receipt Date: 20181126
  Transmission Date: 20190205
  Serious: Yes (Disabling)
  Sender: FDA-Public Use
  Company Number: JP-009507513-1811JPN002991J

PATIENT
  Age: 42 Year
  Sex: Female

DRUGS (1)
  1. FOSAMAC TABLETS 35MG [Suspect]
     Active Substance: ALENDRONATE SODIUM
     Dosage: UNK
     Dates: start: 201012, end: 201607

REACTIONS (3)
  - Fracture delayed union [Unknown]
  - Musculoskeletal disorder [Unknown]
  - Atypical femur fracture [Unknown]
